FAERS Safety Report 25225017 (Version 1)
Quarter: 2025Q2

REPORT INFORMATION
  Report Type: Spontaneous
  Country: US (occurrence: US)
  Receive Date: 20250422
  Receipt Date: 20250422
  Transmission Date: 20250716
  Serious: Yes (Other)
  Sender: ALEXION PHARMACEUTICALS
  Company Number: US-AstraZeneca-CH-00850184AP

PATIENT
  Age: 69 Year

DRUGS (1)
  1. BREZTRI [Suspect]
     Active Substance: BUDESONIDE\FORMOTEROL\GLYCOPYRROLATE
     Indication: Asthma
     Dosage: 160 MICROGRAM, BID
     Route: 065

REACTIONS (5)
  - Asthmatic crisis [Unknown]
  - Dyspnoea [Unknown]
  - Therapy change [Unknown]
  - Device use issue [Unknown]
  - Device malfunction [Unknown]
